FAERS Safety Report 7357397-2 (Version None)
Quarter: 2011Q1

REPORT INFORMATION
  Report Type: 
  Country: None (occurrence: None)
  Receive Date: 20110317
  Receipt Date: 20110302
  Transmission Date: 20110831
  Serious: Yes (Other)
  Sender: FDA-Public Use
  Company Number: PHHY2009JP15343

PATIENT
  Age: 53 Year
  Sex: Female

DRUGS (2)
  1. ZOMETA [Suspect]
     Indication: METASTASES TO BONE
     Dosage: 4 MG, QMO
     Route: 041
  2. CHEMOTHERAPEUTICS NOS [Concomitant]

REACTIONS (6)
  - OSTEONECROSIS OF JAW [None]
  - TOOTHACHE [None]
  - PAIN [None]
  - TOOTH LOSS [None]
  - BONE DISORDER [None]
  - RESORPTION BONE INCREASED [None]
